FAERS Safety Report 6125165-5 (Version None)
Quarter: 2009Q1

REPORT INFORMATION
  Report Type: 
  Country: None (occurrence: None)
  Receive Date: 20090318
  Receipt Date: 20090305
  Transmission Date: 20090719
  Serious: Yes (Other)
  Sender: FDA-Public Use
  Company Number: CHPA2009US06632

PATIENT
  Age: 63 Year
  Sex: Female

DRUGS (1)
  1. EX-LAX MAX STR LAX PLUS SENNA (NCH) (SENNA GLYCOSIDES (CA SALTS OF PUR [Suspect]
     Indication: CONSTIPATION
     Dosage: 50 MG, QHS, ORAL
     Route: 048

REACTIONS (2)
  - INTENTIONAL DRUG MISUSE [None]
  - NEUROPATHY PERIPHERAL [None]
